FAERS Safety Report 8306951-X (Version None)
Quarter: 2012Q2

REPORT INFORMATION
  Report Type: 
  Country: None (occurrence: None)
  Receive Date: 20120424
  Receipt Date: 20120412
  Transmission Date: 20120825
  Serious: Yes (Death, Congenital Anomaly)
  Sender: FDA-Public Use
  Company Number: NL-JNJFOC-20120401867

PATIENT
  Sex: Female

DRUGS (5)
  1. ACETAMINOPHEN [Concomitant]
     Route: 064
  2. REMICADE [Suspect]
     Route: 064
     Dates: start: 20111227
  3. REMICADE [Suspect]
     Indication: FOETAL EXPOSURE DURING PREGNANCY
     Route: 064
     Dates: start: 20120201
  4. ANTIHISTAMINES [Concomitant]
     Route: 064
  5. CORTICOSTEROIDS [Concomitant]
     Route: 064

REACTIONS (3)
  - PREMATURE BABY [None]
  - CONGENITAL ARTERIAL MALFORMATION [None]
  - GASTROINTESTINAL MALFORMATION [None]
